FAERS Safety Report 7884974-2 (Version None)
Quarter: 2011Q4

REPORT INFORMATION
  Report Type: 
  Country: None (occurrence: None)
  Receive Date: 20111102
  Receipt Date: 20111027
  Transmission Date: 20120403
  Serious: Yes (Death, Hospitalization)
  Sender: FDA-Public Use
  Company Number: FR-BAXTER-2011BH034789

PATIENT
  Age: 67 Year
  Sex: Female
  Weight: 38 kg

DRUGS (2)
  1. IFOSFAMIDE [Suspect]
     Indication: SARCOMA
     Route: 042
     Dates: start: 20111005, end: 20111008
  2. DOXORUBICIN HCL [Suspect]
     Indication: SARCOMA
     Route: 065
     Dates: start: 20111005, end: 20111005

REACTIONS (1)
  - SEPTIC SHOCK [None]
